FAERS Safety Report 9809101 (Version 1)
Quarter: 2014Q1

REPORT INFORMATION
  Report Type: Report from Study
  Country: FR (occurrence: FR)
  Receive Date: 20140110
  Receipt Date: 20140110
  Transmission Date: 20141002
  Serious: Yes (Hospitalization, Other)
  Sender: FDA-Public Use
  Company Number: PHHY2014FR002007

PATIENT
  Age: 57 Year
  Sex: Male

DRUGS (20)
  1. MYCOPHENOLIC ACID [Suspect]
     Indication: IMMUNOSUPPRESSION
     Dosage: 1440 MG
     Dates: start: 20130505, end: 20130609
  2. MYCOPHENOLIC ACID [Suspect]
     Dosage: 1080 MG
     Dates: start: 20130610, end: 20130619
  3. MYCOPHENOLIC ACID [Suspect]
     Dosage: 720 MG
     Dates: start: 20130620
  4. SOLUMEDROL [Suspect]
     Indication: IMMUNOSUPPRESSION
     Dosage: 125 MG
     Dates: start: 20130506, end: 20130506
  5. SOLUPRED//PREDNISOLONE METASULFOBENZOATE SODIUM [Suspect]
     Indication: IMMUNOSUPPRESSION
     Dosage: 20 MG
     Dates: start: 20130507, end: 20130606
  6. SOLUPRED//PREDNISOLONE METASULFOBENZOATE SODIUM [Suspect]
     Dosage: 15 MG
     Dates: start: 20130607, end: 20130702
  7. SOLUPRED//PREDNISOLONE METASULFOBENZOATE SODIUM [Suspect]
     Dosage: 12.5 MG
     Dates: start: 20130703, end: 20130710
  8. SOLUPRED//PREDNISOLONE METASULFOBENZOATE SODIUM [Suspect]
     Dosage: 10 MG
     Dates: start: 20130711, end: 20130827
  9. SOLUPRED//PREDNISOLONE METASULFOBENZOATE SODIUM [Suspect]
     Dosage: 7.5 MG
     Dates: start: 20130828, end: 20131022
  10. SOLUPRED//PREDNISOLONE METASULFOBENZOATE SODIUM [Suspect]
     Dosage: 5 MG
     Dates: start: 20131023
  11. PROGRAF [Suspect]
     Indication: IMMUNOSUPPRESSION
     Dosage: 4 MG
     Dates: start: 20130508, end: 20130508
  12. PROGRAF [Suspect]
     Dosage: 8 MG
     Dates: start: 20130509, end: 20130509
  13. PROGRAF [Suspect]
     Dosage: 10 MG
     Dates: start: 20130510, end: 20130514
  14. PROGRAF [Suspect]
     Dosage: 9 MG
     Dates: start: 20130515, end: 20130521
  15. PROGRAF [Suspect]
     Dosage: 7 MG
     Dates: start: 20130522, end: 20130529
  16. PROGRAF [Suspect]
     Dosage: 6 MG
     Dates: start: 20130530, end: 20130602
  17. PROGRAF [Suspect]
     Dosage: 5.5 MG
     Dates: start: 20130603, end: 20130609
  18. PROGRAF [Suspect]
     Dosage: 5 MG
     Dates: start: 20130610, end: 20130702
  19. PROGRAF [Suspect]
     Dosage: 4 MG
     Dates: start: 20130703, end: 20130723
  20. PROGRAF [Suspect]
     Dosage: 3 MG
     Dates: start: 20130724

REACTIONS (7)
  - Diabetes mellitus [Recovered/Resolved]
  - Renal cyst haemorrhage [Unknown]
  - Cytomegalovirus infection [Recovered/Resolved]
  - Hepatitis A [Unknown]
  - Nephropathy toxic [Recovered/Resolved]
  - Blood creatinine increased [Recovered/Resolved]
  - Leukopenia [Recovered/Resolved]
